FAERS Safety Report 8968789 (Version 1)
Quarter: 2012Q4

REPORT INFORMATION
  Report Type: 
  Country: US (occurrence: US)
  Receive Date: 20121218
  Receipt Date: 20121218
  Transmission Date: 20130627
  Serious: No
  Sender: FDA-Public Use
  Company Number: US-BRISTOL-MYERS SQUIBB COMPANY-16353690

PATIENT
  Sex: Female

DRUGS (3)
  1. ABILIFY [Suspect]
  2. CELEXA [Suspect]
  3. XANAX [Concomitant]

REACTIONS (5)
  - Tinnitus [Unknown]
  - Muscle spasms [Unknown]
  - Visual impairment [Unknown]
  - Feeling abnormal [Unknown]
  - Fatigue [Unknown]
